FAERS Safety Report 7217583-9 (Version None)
Quarter: 2011Q1

REPORT INFORMATION
  Report Type: 
  Country: None (occurrence: None)
  Receive Date: 20110110
  Receipt Date: 20101228
  Transmission Date: 20110831
  Serious: Yes (Life-Threatening, Hospitalization, Other)
  Sender: FDA-Public Use
  Company Number: DE-ROCHE-739881

PATIENT
  Sex: Female

DRUGS (11)
  1. COPEGUS [Suspect]
     Indication: HEPATITIS C
     Route: 048
     Dates: start: 20100825, end: 20101005
  2. DOPERGIN [Suspect]
     Indication: DEPRESSION
     Route: 065
     Dates: start: 20080101
  3. OMEPRAZOLE [Concomitant]
     Indication: PROPHYLAXIS
  4. MIANSERIN [Suspect]
     Indication: DEPRESSION
     Route: 065
     Dates: start: 20080101
  5. METHADON [Concomitant]
     Indication: DRUG WITHDRAWAL MAINTENANCE THERAPY
  6. FERROUS SULFATE TAB [Concomitant]
  7. HALOPERIDOL [Concomitant]
     Route: 048
  8. CITALOPRAM [Suspect]
     Indication: DEPRESSION
     Route: 065
     Dates: start: 20080101
  9. PEGASYS [Suspect]
     Indication: HEPATITIS C
     Route: 058
     Dates: start: 20100825, end: 20100929
  10. OPIPRAMOL [Suspect]
     Indication: DEPRESSION
     Route: 065
     Dates: start: 20080101
  11. IBUPROFEN [Concomitant]
     Indication: PAIN

REACTIONS (10)
  - RENAL FAILURE ACUTE [None]
  - PULMONARY OEDEMA [None]
  - SEPSIS [None]
  - PNEUMOTHORAX [None]
  - THROMBOCYTOPENIA [None]
  - INTERSTITIAL LUNG DISEASE [None]
  - PANCYTOPENIA [None]
  - ANAEMIA [None]
  - ACUTE RESPIRATORY FAILURE [None]
  - CRITICAL ILLNESS POLYNEUROPATHY [None]
